FAERS Safety Report 8255298-9 (Version None)
Quarter: 2012Q2

REPORT INFORMATION
  Report Type: 
  Country: None (occurrence: None)
  Receive Date: 20120403
  Receipt Date: 20120320
  Transmission Date: 20120825
  Serious: Yes (Death, Other)
  Sender: FDA-Public Use
  Company Number: GB-MYLANLABS-2011S1026135

PATIENT
  Weight: 2.86 kg

DRUGS (1)
  1. SERTRALINE HYDROCHLORIDE [Suspect]
     Route: 064

REACTIONS (3)
  - FOETAL DEATH [None]
  - MATERNAL EXPOSURE DURING PREGNANCY [None]
  - STILLBIRTH [None]
